FAERS Safety Report 5951974-9 (Version None)
Quarter: 2008Q4

REPORT INFORMATION
  Report Type: 
  Country: None (occurrence: None)
  Receive Date: 20081113
  Receipt Date: 20071012
  Transmission Date: 20090506
  Serious: No
  Sender: FDA-Public Use
  Company Number: A0687558A

PATIENT
  Age: 62 Year
  Sex: Female

DRUGS (5)
  1. COREG [Suspect]
     Indication: LEFT VENTRICULAR DYSFUNCTION
     Dosage: 25MG TWICE PER DAY
     Route: 048
     Dates: start: 20040501
  2. BENICAR HCT [Concomitant]
  3. ZETIA [Concomitant]
  4. POTASSIUM CHLORIDE [Concomitant]
  5. LEVOTHYROXINE SODIUM [Concomitant]

REACTIONS (5)
  - ABDOMINAL DISTENSION [None]
  - ABDOMINAL PAIN [None]
  - FLATULENCE [None]
  - MUSCLE SPASMS [None]
  - VOMITING [None]
